FAERS Safety Report 15786942 (Version 3)
Quarter: 2019Q1

REPORT INFORMATION
  Report Type: Report from Study
  Country: RO (occurrence: RO)
  Receive Date: 20190103
  Receipt Date: 20190206
  Transmission Date: 20190417
  Serious: Yes (Hospitalization)
  Sender: FDA-Public Use
  Company Number: RO-AMREGENT-20182467

PATIENT
  Age: 71 Year
  Sex: Male
  Weight: 69 kg

DRUGS (12)
  1. RAMIPRIL. [Concomitant]
     Active Substance: RAMIPRIL
     Dosage: 2.5 MG (2.5 MG, 1 IN 1 D)
     Route: 048
     Dates: start: 20171222, end: 20181107
  2. HYDROCHLOROTHIAZIDE. [Concomitant]
     Active Substance: HYDROCHLOROTHIAZIDE
     Dosage: 25 MG (25 MG, 1 IN 1 D)
     Route: 048
     Dates: start: 20171222
  3. DIGOXIN. [Concomitant]
     Active Substance: DIGOXIN
     Dosage: 0.25 MG (0.25 MG, 1 IN 1 D)
     Route: 048
     Dates: start: 20170526, end: 20181112
  4. GLIQUIDONE [Concomitant]
     Active Substance: GLIQUIDONE
     Dosage: 15 MG (15 MG, 1 IN 1 D)
     Route: 048
     Dates: start: 20170715
  5. SALMETEROL/FLUTICASONE [Concomitant]
     Active Substance: FLUTICASONE PROPIONATE\SALMETEROL XINAFOATE
     Dosage: 50/500 MCG (2 IN 1 D)
     Route: 065
     Dates: start: 20170630, end: 20171211
  6. FUROSEMIDE. [Concomitant]
     Active Substance: FUROSEMIDE
     Dosage: 80 MG (40 MG, 2 IN 1 D)
     Route: 048
     Dates: start: 20171013, end: 20171210
  7. METOPROLOL SUCCINATE. [Concomitant]
     Active Substance: METOPROLOL SUCCINATE
     Dosage: 75 MG (75 MG, 1 IN 1 D)
     Route: 048
     Dates: start: 20170526, end: 20171222
  8. FERINJECT [Suspect]
     Active Substance: FERRIC CARBOXYMALTOSE
     Dosage: 20 ML (10 ML 2 KITS)
     Route: 040
     Dates: start: 20171222, end: 20171222
  9. PANTOPRAZOLUM [Concomitant]
     Active Substance: PANTOPRAZOLE
     Dosage: 20 MG (20 MG, 1 IN 1 D)
     Route: 048
     Dates: start: 20170519
  10. GALANTAMINE. [Concomitant]
     Active Substance: GALANTAMINE
     Dosage: 24 MG (24 MG, 1 IN 1 D)
     Route: 048
     Dates: start: 20170630
  11. ROPINIROLE. [Concomitant]
     Active Substance: ROPINIROLE
     Dosage: 8 MG (8 MG, 1 IN 1 D)
     Route: 048
     Dates: start: 20170630
  12. ACENOCOUMAROL [Concomitant]
     Active Substance: ACENOCOUMAROL
     Dosage: 2 MG (2 MG,1 IN 1 D)
     Route: 048
     Dates: start: 20170714

REACTIONS (1)
  - Lower respiratory tract infection [Recovered/Resolved]

NARRATIVE: CASE EVENT DATE: 20181210
